FAERS Safety Report 8133092-7 (Version None)
Quarter: 2012Q1

REPORT INFORMATION
  Report Type: 
  Country: None (occurrence: None)
  Receive Date: 20120213
  Receipt Date: 20120209
  Transmission Date: 20120608
  Serious: Yes (Death, Life-Threatening, Hospitalization, Other)
  Sender: FDA-Public Use
  Company Number: US-B.I. PHARMACEUTICALS,INC./RIDGEFIELD-2012-BP-01882BP

PATIENT
  Age: 78 Year
  Sex: Female
  Weight: 233 kg

DRUGS (19)
  1. IMDUR [Concomitant]
  2. ATIVAN [Concomitant]
     Dosage: 0.5 MG
  3. CEFEPIME [Concomitant]
     Indication: URINARY TRACT INFECTION
     Dosage: 3 G
  4. MAGNESIUM HYDROXIDE TAB [Concomitant]
  5. PRADAXA [Suspect]
     Indication: ATRIAL FIBRILLATION
     Dosage: 300 MG
     Route: 048
     Dates: start: 20120120
  6. IRBESARTAN [Concomitant]
  7. RANEXA [Suspect]
  8. LANTUS [Concomitant]
  9. WARFARIN SODIUM [Concomitant]
     Dates: start: 20120117
  10. SINGULAIR [Concomitant]
  11. HEPARIN [Concomitant]
     Dates: start: 20120117, end: 20120120
  12. ZOLOFT [Concomitant]
  13. AGGRENOX [Concomitant]
  14. ENOXAPARIN [Concomitant]
     Dosage: 300 MG
  15. INSULIN [Concomitant]
  16. BISOPROLOL FUMARATE [Concomitant]
  17. ISOSORBIDE DINITRATE [Concomitant]
     Dosage: 60 MG
  18. SYNTHROID [Concomitant]
     Dosage: 0.175 MG
  19. SEROQUEL [Concomitant]

REACTIONS (11)
  - RENAL FAILURE [None]
  - PROCEDURAL HAEMORRHAGE [None]
  - VOMITING [None]
  - BRADYCARDIA [None]
  - ACUTE MYOCARDIAL INFARCTION [None]
  - GASTROOESOPHAGEAL REFLUX DISEASE [None]
  - CARDIAC ARREST [None]
  - NAUSEA [None]
  - DRUG INTERACTION [None]
  - LOWER GASTROINTESTINAL HAEMORRHAGE [None]
  - ANAEMIA [None]
